FAERS Safety Report 25584782 (Version 1)
Quarter: 2025Q3

REPORT INFORMATION
  Report Type: Spontaneous
  Country: US (occurrence: US)
  Receive Date: 20250721
  Receipt Date: 20250721
  Transmission Date: 20251020
  Serious: Yes (Other)
  Sender: SANDOZ
  Company Number: US-SANDOZ-SDZ2025US050231

PATIENT
  Age: 80 Year
  Sex: Female

DRUGS (1)
  1. POLYMYXIN B SULFATE\TRIMETHOPRIM [Suspect]
     Active Substance: POLYMYXIN B SULFATE\TRIMETHOPRIM
     Indication: Eye infection
     Dosage: 2 DROP, TID (FREQUENCY: TWO DROPS THREE TIMES A DAY) (TRIMETHOPRIM 1%/ POLYMYXIN B 10ML LDP US)
     Route: 047
     Dates: start: 20250714

REACTIONS (1)
  - Eye irritation [Unknown]

NARRATIVE: CASE EVENT DATE: 20250714
